FAERS Safety Report 4279293-X (Version None)
Quarter: 2004Q1

REPORT INFORMATION
  Report Type: 
  Country: None (occurrence: None)
  Receive Date: 20040126
  Receipt Date: 20040126
  Transmission Date: 20041129
  Serious: No
  Sender: FDA-Public Use
  Company Number: None

PATIENT
  Age: 61 Year
  Sex: Female

DRUGS (5)
  1. METFORMIN ER 500 PAR [Suspect]
     Indication: DIABETES MELLITUS
     Dosage: 1 PO QID
     Route: 048
     Dates: start: 20040106
  2. FUROSEMIDE [Concomitant]
  3. AVANDIA [Concomitant]
  4. POTASSIUM CHLORIDE [Concomitant]
  5. COZAAR [Concomitant]

REACTIONS (5)
  - BLOOD GLUCOSE INCREASED [None]
  - HEADACHE [None]
  - MUSCULOSKELETAL STIFFNESS [None]
  - PHARMACEUTICAL PRODUCT COMPLAINT [None]
  - SWOLLEN TONGUE [None]
